FAERS Safety Report 9881097 (Version 1)
Quarter: 2014Q1

REPORT INFORMATION
  Report Type: Spontaneous
  Country: US (occurrence: US)
  Receive Date: 20140207
  Receipt Date: 20140207
  Transmission Date: 20141002
  Serious: No
  Sender: FDA-Public Use
  Company Number: US-PFIZER INC-2014033883

PATIENT
  Age: 71 Year
  Sex: Male
  Weight: 68.03 kg

DRUGS (2)
  1. NEURONTIN [Suspect]
     Indication: CONVULSION
     Dosage: 600 MG, 6X/DAY
  2. DILANTIN [Suspect]
     Indication: CONVULSION
     Dosage: 100 MG, 5XDAY

REACTIONS (1)
  - Insomnia [Unknown]
